FAERS Safety Report 8652702 (Version 2)
Quarter: 2012Q4

REPORT INFORMATION
  Report Type: Report from Study
  Country: AU (occurrence: AU)
  Receive Date: 20120706
  Receipt Date: 20121005
  Transmission Date: 20130627
  Serious: Yes (Other)
  Sender: FDA-Public Use
  Company Number: AU-ROCHE-1084726

PATIENT
  Age: 49 Year
  Sex: Female

DRUGS (8)
  1. ROACTEMRA [Suspect]
     Indication: RHEUMATOID ARTHRITIS
     Dosage: volume of infusion 28 mg or ml
     Route: 042
     Dates: start: 20120607
  2. SOMAC (AUSTRALIA) [Concomitant]
     Route: 065
     Dates: start: 20120629
  3. SOMAC (AUSTRALIA) [Concomitant]
     Route: 065
     Dates: start: 20120629
  4. HRT NOS [Concomitant]
  5. COVASTIN [Concomitant]
     Route: 065
  6. QVAR [Concomitant]
     Route: 065
  7. VITAMIN D [Concomitant]
     Route: 065
  8. BION TEARS [Concomitant]

REACTIONS (6)
  - Oropharyngeal pain [Not Recovered/Not Resolved]
  - Cough [Not Recovered/Not Resolved]
  - Lower respiratory tract infection [Recovered/Resolved]
  - Abdominal pain upper [Not Recovered/Not Resolved]
  - Musculoskeletal chest pain [Not Recovered/Not Resolved]
  - Sinusitis [Unknown]
